FAERS Safety Report 22332301 (Version 8)
Quarter: 2024Q3

REPORT INFORMATION
  Report Type: Spontaneous
  Country: GT (occurrence: GT)
  Receive Date: 20230517
  Receipt Date: 20240923
  Transmission Date: 20241017
  Serious: No
  Sender: PFIZER
  Company Number: GT-PFIZER INC-PV202200104891

PATIENT
  Age: 10 Year
  Sex: Female

DRUGS (2)
  1. GENOTROPIN [Suspect]
     Active Substance: SOMATROPIN
     Indication: Blood growth hormone
     Dosage: 1 MG, DAILY
  2. GENOTROPIN [Suspect]
     Active Substance: SOMATROPIN
     Dosage: 10 MG, DAILY

REACTIONS (1)
  - Device information output issue [Unknown]

NARRATIVE: CASE EVENT DATE: 20230507
